FAERS Safety Report 6030288-5 (Version None)
Quarter: 2009Q1

REPORT INFORMATION
  Report Type: 
  Country: None (occurrence: None)
  Receive Date: 20090106
  Receipt Date: 20090106
  Transmission Date: 20090719
  Serious: Yes (Other)
  Sender: FDA-Public Use
  Company Number: None

PATIENT
  Age: 57 Year
  Sex: Female
  Weight: 54.8852 kg

DRUGS (1)
  1. BONIVA [Suspect]
     Indication: OSTEOPENIA
     Dosage: 1 TABLET MONTHLY OTHER
     Route: 050
     Dates: start: 20050902, end: 20081001

REACTIONS (9)
  - BONE DISORDER [None]
  - BONE GRAFT [None]
  - DENTAL PROSTHESIS USER [None]
  - FEAR [None]
  - FEELING ABNORMAL [None]
  - JAW DISORDER [None]
  - RESORPTION BONE INCREASED [None]
  - TOOTH DISORDER [None]
  - TOOTH LOSS [None]
